FAERS Safety Report 8772871 (Version 4)
Quarter: 2013Q1

REPORT INFORMATION
  Report Type: Spontaneous
  Country: US (occurrence: US)
  Receive Date: 20120907
  Receipt Date: 20130108
  Transmission Date: 20140127
  Serious: Yes (Other)
  Sender: FDA-Public Use
  Company Number: US-PERRIGO-12US007537

PATIENT
  Age: 15 Year
  Sex: Male
  Weight: 63.49 kg

DRUGS (6)
  1. TRIAMCINOLONE ACETONIDE RX 0.1% 2F8 [Suspect]
     Indication: DERMATITIS CONTACT
     Dosage: SMALL AMOUNT, TID
     Route: 061
     Dates: start: 20120822, end: 20120824
  2. ERYTHROMYCIN [Concomitant]
     Indication: GASTROOESOPHAGEAL REFLUX DISEASE
     Dosage: UNK, UNK
     Route: 048
  3. QVAR [Concomitant]
     Indication: ASTHMA
     Dosage: UNK, UNK
     Route: 055
  4. AMOXICILLIN [Concomitant]
     Indication: PRODUCT USED FOR UNKNOWN INDICATION
     Dosage: 250 MG, TID
     Route: 048
     Dates: start: 20090408
  5. FEXOFENADINE [Concomitant]
     Indication: PRODUCT USED FOR UNKNOWN INDICATION
     Dosage: 180 MG, QD
     Route: 048
     Dates: start: 20090408
  6. LANSOPRAZOLE [Concomitant]
     Indication: PRODUCT USED FOR UNKNOWN INDICATION
     Dosage: 30 MG, QD
     Route: 048
     Dates: start: 20090408

REACTIONS (3)
  - Urticaria [Recovered/Resolved]
  - Blood pressure decreased [Recovered/Resolved]
  - Hypersensitivity [Recovered/Resolved]
